FAERS Safety Report 5744989-7 (Version None)
Quarter: 2008Q2

REPORT INFORMATION
  Report Type: 
  Country: None (occurrence: None)
  Receive Date: 20080521
  Receipt Date: 20080509
  Transmission Date: 20081010
  Serious: Yes (Hospitalization, Other)
  Sender: FDA-Public Use
  Company Number: US-JNJFOC-20080502061

PATIENT
  Sex: Female
  Weight: 86.18 kg

DRUGS (4)
  1. REMICADE [Suspect]
     Indication: PSORIASIS
     Route: 042
  2. REMICADE [Suspect]
     Indication: PSORIATIC ARTHROPATHY
     Route: 042
  3. REMICADE [Suspect]
     Indication: CROHN'S DISEASE
     Dosage: RECEIVED FOR 6 MONTHS
     Route: 042
  4. UNKNOWN MEDICATION [Concomitant]
     Indication: BLOOD PRESSURE

REACTIONS (5)
  - ABSCESS LIMB [None]
  - ARTHRALGIA [None]
  - DISORIENTATION [None]
  - HYPOKINESIA [None]
  - WHITE BLOOD CELL COUNT INCREASED [None]
